FAERS Safety Report 4961626-X (Version None)
Quarter: 2006Q1

REPORT INFORMATION
  Report Type: 
  Country: None (occurrence: None)
  Receive Date: 20060329
  Receipt Date: 20060314
  Transmission Date: 20060701
  Serious: Yes (Disabling, Other)
  Sender: FDA-Public Use
  Company Number: 13610

PATIENT
  Age: 54 Year
  Sex: Male
  Weight: 79.3795 kg

DRUGS (5)
  1. METHOTREXATE 25MG/ML [Suspect]
     Dosage: 1 ML WEEKLY SC
     Route: 058
  2. LEFLUNOMIDE [Concomitant]
  3. NAPROSYN [Concomitant]
  4. OMEPRAZOLE [Concomitant]
  5. NASONEX [Concomitant]

REACTIONS (6)
  - ARTHRALGIA [None]
  - FATIGUE [None]
  - FEELING COLD [None]
  - GROIN PAIN [None]
  - TREMOR [None]
  - VOMITING [None]
